FAERS Safety Report 8305939-2 (Version None)
Quarter: 2012Q1

REPORT INFORMATION
  Report Type: 
  Country: None (occurrence: None)
  Receive Date: 20120327
  Receipt Date: 20091103
  Transmission Date: 20120608
  Serious: Yes (Other)
  Sender: FDA-Public Use
  Company Number: PHEH2009US15528

PATIENT
  Age: 81 Year
  Sex: Female
  Weight: 57.1 kg

DRUGS (3)
  1. GLEEVEC [Suspect]
     Indication: CHRONIC MYELOID LEUKAEMIA
     Dosage: 400 MG, QD, ORAL
     Route: 048
     Dates: start: 20090305, end: 20090615
  2. VITAMIN D [Concomitant]
  3. ASPIRIN [Concomitant]

REACTIONS (1)
  - HEPATOTOXICITY [None]
